FAERS Safety Report 5279438-9 (Version None)
Quarter: 2007Q1

REPORT INFORMATION
  Report Type: 
  Country: None (occurrence: None)
  Receive Date: 20070328
  Receipt Date: 20070315
  Transmission Date: 20070707
  Serious: Yes (Hospitalization, Other)
  Sender: FDA-Public Use
  Company Number: DE-ELI_LILLY_AND_COMPANY-DE200703003669

PATIENT
  Age: 51 Year
  Sex: Female

DRUGS (8)
  1. CYMBALTA [Suspect]
     Indication: SCHIZOPHRENIA
     Dosage: 30 MG, DAILY (1/D)
     Route: 048
     Dates: start: 20061001, end: 20061122
  2. LEPONEX [Concomitant]
     Route: 048
     Dates: start: 19930101, end: 20060901
  3. LEPONEX [Concomitant]
     Dosage: 900 MG, DAILY (1/D)
     Route: 048
     Dates: start: 20061001, end: 20061122
  4. LEPONEX [Concomitant]
     Dosage: 400 MG, DAILY (1/D)
     Route: 048
     Dates: start: 20061123
  5. RISPERDAL [Interacting]
     Dosage: 1 MG, DAILY (1/D)
     Route: 048
     Dates: start: 20061001, end: 20061122
  6. ABILIFY [Concomitant]
     Dosage: 10 MG, DAILY (1/D)
     Route: 048
     Dates: start: 20061001, end: 20061122
  7. DOXEPIN HCL [Interacting]
     Dosage: 50 MG, DAILY (1/D)
     Route: 048
     Dates: start: 20061001, end: 20061122
  8. GASTROZEPIN [Concomitant]
     Dosage: 50 MG, DAILY (1/D)
     Route: 048
     Dates: start: 20061001, end: 20061122

REACTIONS (8)
  - ASPARTATE AMINOTRANSFERASE INCREASED [None]
  - BLOOD CREATINE PHOSPHOKINASE INCREASED [None]
  - BRONCHOPNEUMONIA [None]
  - CONVULSION [None]
  - GLUTAMATE DEHYDROGENASE INCREASED [None]
  - HYPONATRAEMIA [None]
  - LOSS OF CONSCIOUSNESS [None]
  - SOMNOLENCE [None]
